FAERS Safety Report 4768794-3 (Version None)
Quarter: 2005Q3

REPORT INFORMATION
  Report Type: 
  Country: None (occurrence: None)
  Receive Date: 20050914
  Receipt Date: 20050901
  Transmission Date: 20060218
  Serious: Yes (Disabling)
  Sender: FDA-Public Use
  Company Number: 2005RL000110

PATIENT
  Age: 54 Year
  Sex: Male
  Weight: 56.246 kg

DRUGS (4)
  1. ANTARA [Suspect]
     Indication: HYPERLIPIDAEMIA
     Dosage: 130 MG; QAM; PO
     Route: 048
     Dates: start: 20050608, end: 20050701
  2. WELLBUTRIN [Concomitant]
  3. PEPCID AC [Concomitant]
  4. ASPIRIN [Concomitant]

REACTIONS (3)
  - SCOTOMA [None]
  - TREATMENT NONCOMPLIANCE [None]
  - VISION BLURRED [None]
